FAERS Safety Report 18901534 (Version 1)
Quarter: 2021Q1

REPORT INFORMATION
  Report Type: Not Available
  Country: IT (occurrence: IT)
  Receive Date: 20210216
  Receipt Date: 20210216
  Transmission Date: 20210420
  Serious: Yes (Hospitalization)
  Sender: FDA-Public Use
  Company Number: IT-TEIKOKU PHARMA USA-TPU2021-00251

PATIENT
  Age: 58 Year
  Sex: Female

DRUGS (6)
  1. IPNOVEL [MIDAZOLAM] [Suspect]
     Active Substance: MIDAZOLAM HYDROCHLORIDE
     Indication: SURGERY
     Route: 065
     Dates: start: 20210118, end: 20210118
  2. TENORETIC [Concomitant]
     Active Substance: ATENOLOL\CHLORTHALIDONE
  3. MEPIVACAINE [Suspect]
     Active Substance: MEPIVACAINE HYDROCHLORIDE
     Indication: PRODUCT USED FOR UNKNOWN INDICATION
     Route: 065
     Dates: start: 20210118, end: 20210118
  4. LIDOCAINE. [Suspect]
     Active Substance: LIDOCAINE
     Indication: PRODUCT USED FOR UNKNOWN INDICATION
     Route: 065
     Dates: start: 20210118, end: 20210118
  5. LEVOBUPIVACAINE HYDROCHLORIDE [Suspect]
     Active Substance: LEVOBUPIVACAINE HYDROCHLORIDE
     Indication: PRODUCT USED FOR UNKNOWN INDICATION
     Route: 065
     Dates: start: 20210118, end: 20210118
  6. CEFAMEZIN SODIUM [Suspect]
     Active Substance: CEFAZOLIN SODIUM
     Indication: SURGERY
     Route: 041
     Dates: start: 20210118, end: 20210118

REACTIONS (4)
  - Dysphonia [Recovering/Resolving]
  - Hypotension [Recovering/Resolving]
  - Erythema [Recovering/Resolving]
  - Face oedema [Recovering/Resolving]

NARRATIVE: CASE EVENT DATE: 20210118
